FAERS Safety Report 7798519-9 (Version None)
Quarter: 2011Q4

REPORT INFORMATION
  Report Type: 
  Country: None (occurrence: None)
  Receive Date: 20111005
  Receipt Date: 20110930
  Transmission Date: 20120403
  Serious: Yes (Other)
  Sender: FDA-Public Use
  Company Number: JP-ABBOTT-11P-087-0860757-00

PATIENT
  Sex: Female

DRUGS (12)
  1. LANSOPRAZOLE [Concomitant]
     Indication: OESOPHAGEAL ULCER
     Route: 048
     Dates: start: 20110720
  2. POTACOL-R [Concomitant]
     Indication: PRODUCT USED FOR UNKNOWN INDICATION
     Dosage: NI DR NI
     Dates: start: 20110725, end: 20110801
  3. LULLAN [Suspect]
     Indication: ANXIETY DISORDER
     Dosage: DAILY
     Route: 048
     Dates: start: 20110729, end: 20110731
  4. RIZE [Concomitant]
     Indication: ANXIETY DISORDER
     Route: 048
     Dates: start: 20110729
  5. RIZE [Concomitant]
     Indication: HALLUCINATION, AUDITORY
  6. AKINETON [Suspect]
     Indication: ANXIETY DISORDER
     Dosage: DAILY
     Route: 048
     Dates: start: 20110729, end: 20110731
  7. LULLAN [Suspect]
     Indication: HALLUCINATION, AUDITORY
  8. VEEN D [Concomitant]
     Indication: PRODUCT USED FOR UNKNOWN INDICATION
     Dosage: NI DR NI
     Dates: start: 20110721, end: 20110803
  9. AKINETON [Suspect]
     Indication: HALLUCINATION, AUDITORY
  10. SODIUM CHLORIDE INJ [Concomitant]
     Indication: PRODUCT USED FOR UNKNOWN INDICATION
     Dosage: NI DR NI
     Dates: start: 20110721, end: 20110803
  11. SODIUM CHLORIDE INJ [Concomitant]
     Dosage: NI DR NI
     Dates: start: 20110725, end: 20110801
  12. MAGNESIUM OXIDE [Concomitant]
     Indication: CONSTIPATION
     Route: 048
     Dates: start: 20110729

REACTIONS (1)
  - NEUROLEPTIC MALIGNANT SYNDROME [None]
